FAERS Safety Report 6858279-2 (Version None)
Quarter: 2010Q3

REPORT INFORMATION
  Report Type: 
  Country: None (occurrence: None)
  Receive Date: 20100719
  Receipt Date: 20080418
  Transmission Date: 20110219
  Serious: Yes (Other)
  Sender: FDA-Public Use
  Company Number: US-PFIZER INC-2008012389

PATIENT
  Sex: Male
  Weight: 97.5 kg

DRUGS (3)
  1. CHANTIX [Suspect]
     Indication: SMOKING CESSATION THERAPY
     Dates: start: 20080101
  2. ZYPREXA [Concomitant]
  3. CLONAZEPAM [Concomitant]

REACTIONS (2)
  - DEPRESSION [None]
  - FEELING COLD [None]
